FAERS Safety Report 16358802 (Version 3)
Quarter: 2019Q3

REPORT INFORMATION
  Report Type: Spontaneous
  Country: US (occurrence: US)
  Receive Date: 20190527
  Receipt Date: 20190809
  Transmission Date: 20191004
  Serious: Yes (Other)
  Sender: FDA-Public Use
  Company Number: US-LEXICON PHARMACEUTICALS, INC-19-1606-00594

PATIENT
  Age: 65 Year
  Sex: Female

DRUGS (17)
  1. POTASSIUM CHLORIDE. [Concomitant]
     Active Substance: POTASSIUM CHLORIDE
  2. VENLAFAXINE [Concomitant]
     Active Substance: VENLAFAXINE HYDROCHLORIDE
  3. SANDOSTATIN [Concomitant]
     Active Substance: OCTREOTIDE ACETATE
  4. DRONABINOL. [Concomitant]
     Active Substance: DRONABINOL
  5. LEVAQUIN [Concomitant]
     Active Substance: LEVOFLOXACIN
  6. MAGNESIUM [Concomitant]
     Active Substance: MAGNESIUM
  7. RANEXA [Concomitant]
     Active Substance: RANOLAZINE
  8. NITROGLYCERIN. [Concomitant]
     Active Substance: NITROGLYCERIN
  9. ASPIRIN. [Concomitant]
     Active Substance: ASPIRIN
  10. BRILINTA [Concomitant]
     Active Substance: TICAGRELOR
  11. FEXOFENADINE [Concomitant]
     Active Substance: FEXOFENADINE HYDROCHLORIDE
  12. FLUTICASONE. [Concomitant]
     Active Substance: FLUTICASONE
  13. TELOTRISTAT ETHYL [Suspect]
     Active Substance: TELOTRISTAT ETHYL
     Indication: CARCINOID SYNDROME
     Route: 048
     Dates: start: 20180926
  14. KLOR-CON [Concomitant]
     Active Substance: POTASSIUM CHLORIDE
  15. THIAMINE. [Concomitant]
     Active Substance: THIAMINE
  16. VITAMIN D [Concomitant]
     Active Substance: VITAMIN D NOS
  17. XANAX [Concomitant]
     Active Substance: ALPRAZOLAM

REACTIONS (5)
  - Heart valve incompetence [Unknown]
  - Cough [Unknown]
  - Weight decreased [Unknown]
  - Catheterisation cardiac [Unknown]
  - Decreased appetite [Unknown]

NARRATIVE: CASE EVENT DATE: 201905
